FAERS Safety Report 9258088 (Version 1)
Quarter: 2013Q1

REPORT INFORMATION
  Report Type: Spontaneous
  Country: US (occurrence: None)
  Receive Date: 20121212
  Receipt Date: 20121212
  Transmission Date: 20140127
  Serious: No
  Sender: FDA-Public Use
  Company Number: 1207USA009095

PATIENT
  Age: 49 Year
  Sex: Female
  Weight: 79.4 kg

DRUGS (6)
  1. VICTRELIS (BOCEPREVIR) [Suspect]
  2. XANAX (ALPRAZOLAM) [Concomitant]
  3. VITAMIN D (UNSPECIFIED) [Concomitant]
  4. VENTOLIN (ALBUTEROL SULFATE) [Concomitant]
  5. FLEXERIL (CYCLOBENZAPRINE HYDROCHLORIDE) [Concomitant]
  6. LISINOPRIL (LISINOPRIL) [Concomitant]

REACTIONS (3)
  - Disease recurrence [None]
  - Dyspnoea [None]
  - Lung disorder [None]
